FAERS Safety Report 8691551 (Version 2)
Quarter: 2012Q4

REPORT INFORMATION
  Report Type: 
  Country: US (occurrence: US)
  Receive Date: 20120730
  Receipt Date: 20120911
  Transmission Date: 20130627
  Serious: Yes (Hospitalization, Other)
  Sender: FDA-Public Use
  Company Number: US-PFIZER INC-2012180369

PATIENT
  Age: 43 Year
  Sex: Male
  Weight: 95.24 kg

DRUGS (2)
  1. LIPITOR [Suspect]
     Indication: BLOOD CHOLESTEROL INCREASED
     Dosage: 40 mg, once a day
     Route: 048
     Dates: start: 201203, end: 201203
  2. ASPIRIN [Concomitant]
     Indication: ANTICOAGULANT THERAPY
     Dosage: 81 mg, UNK

REACTIONS (4)
  - Coronary artery occlusion [Recovered/Resolved]
  - Thrombosis [Recovered/Resolved]
  - Oedema peripheral [Recovered/Resolved]
  - Drug administration error [Unknown]
